FAERS Safety Report 14029442 (Version 1)
Quarter: 2017Q3

REPORT INFORMATION
  Report Type: Spontaneous
  Country: US (occurrence: US)
  Receive Date: 20170930
  Receipt Date: 20170930
  Transmission Date: 20171128
  Serious: No
  Sender: FDA-Public Use
  Company Number: US-SA-2017SA142069

PATIENT
  Age: 55 Year
  Sex: Female

DRUGS (6)
  1. AUBAGIO [Suspect]
     Active Substance: TERIFLUNOMIDE
     Indication: MULTIPLE SCLEROSIS
     Route: 048
     Dates: start: 20170605
  2. LEXAPRO [Concomitant]
     Active Substance: ESCITALOPRAM OXALATE
  3. ALEVE [Concomitant]
     Active Substance: NAPROXEN SODIUM
  4. SINGULAIR [Concomitant]
     Active Substance: MONTELUKAST SODIUM
  5. ZOLPIDEM [Concomitant]
     Active Substance: ZOLPIDEM\ZOLPIDEM TARTRATE
  6. CLONAZEPAM. [Concomitant]
     Active Substance: CLONAZEPAM

REACTIONS (3)
  - Abdominal pain upper [Unknown]
  - Diarrhoea [Unknown]
  - Nausea [Unknown]

NARRATIVE: CASE EVENT DATE: 201706
